FAERS Safety Report 9667663 (Version 2)
Quarter: 2013Q4

REPORT INFORMATION
  Report Type: Spontaneous
  Country: US (occurrence: US)
  Receive Date: 20131104
  Receipt Date: 20131104
  Transmission Date: 20140711
  Serious: Yes (Hospitalization)
  Sender: FDA-Public Use
  Company Number: US-B.I. PHARMACEUTICALS,INC./RIDGEFIELD-2013-BI-17936BP

PATIENT
  Sex: Female
  Weight: 83.46 kg

DRUGS (9)
  1. PRADAXA [Suspect]
     Indication: ATRIAL FIBRILLATION
     Dosage: 300 MG
     Route: 048
     Dates: start: 20110107, end: 20110926
  2. ASPIRIN [Suspect]
     Dosage: 81 MG
     Route: 048
     Dates: end: 20110926
  3. RESTORIL [Concomitant]
     Route: 048
  4. DIOVAN-HCT [Concomitant]
     Route: 048
  5. FENOFIBRATE [Concomitant]
     Dosage: 145 MG
     Route: 048
  6. LASIX [Concomitant]
     Dosage: 40 MG
     Route: 048
  7. JANUVIA [Concomitant]
     Dosage: 100 MG
     Route: 048
  8. CRESTOR [Concomitant]
     Dosage: 20 MG
     Route: 048
  9. LANOXIN [Concomitant]
     Dosage: 125 MCG
     Route: 048

REACTIONS (4)
  - Haemorrhagic anaemia [Unknown]
  - Gastrointestinal haemorrhage [Unknown]
  - Coagulopathy [Unknown]
  - Iron deficiency anaemia [Unknown]
